FAERS Safety Report 8110954-8 (Version None)
Quarter: 2012Q1

REPORT INFORMATION
  Report Type: 
  Country: None (occurrence: None)
  Receive Date: 20120203
  Receipt Date: 20110103
  Transmission Date: 20120608
  Serious: No
  Sender: FDA-Public Use
  Company Number: US-GLAXOSMITHKLINE-A0903725A

PATIENT
  Age: 65 Year
  Sex: Female

DRUGS (3)
  1. LAMICTAL [Suspect]
     Indication: BIPOLAR DISORDER
     Route: 048
  2. LEXAPRO [Suspect]
     Indication: DEPRESSION
     Dosage: 5MG PER DAY
     Route: 048
     Dates: start: 20101209
  3. IMODIUM [Suspect]
     Indication: DIARRHOEA
     Route: 048
     Dates: start: 20101214

REACTIONS (8)
  - DRUG INTERACTION [None]
  - BLOOD PRESSURE INCREASED [None]
  - HEADACHE [None]
  - DIARRHOEA [None]
  - NAUSEA [None]
  - DIZZINESS [None]
  - FLUSHING [None]
  - MALAISE [None]
